FAERS Safety Report 21033212 (Version 2)
Quarter: 2022Q3

REPORT INFORMATION
  Report Type: Spontaneous
  Country: None (occurrence: FR)
  Receive Date: 20220701
  Receipt Date: 20220706
  Transmission Date: 20221026
  Serious: Yes (Other)
  Sender: FDA-Public Use
  Company Number: FR-HILL DERMACEUTICALS, INC.-2130482

PATIENT
  Age: 80 Year
  Sex: Female

DRUGS (1)
  1. TOLAK [Suspect]
     Active Substance: FLUOROURACIL
     Indication: Actinic keratosis
     Route: 061
     Dates: start: 20220515, end: 20220530

REACTIONS (4)
  - Dermo-hypodermitis [Unknown]
  - Dermatitis contact [Unknown]
  - Product administered at inappropriate site [None]
  - Off label use [None]
